FAERS Safety Report 5988941-5 (Version None)
Quarter: 2008Q4

REPORT INFORMATION
  Report Type: 
  Country: None (occurrence: None)
  Receive Date: 20081208
  Receipt Date: 20081208
  Transmission Date: 20090506
  Serious: Yes (Other)
  Sender: FDA-Public Use
  Company Number: None

PATIENT
  Sex: Female
  Weight: 61.2356 kg

DRUGS (1)
  1. NEXIUM [Suspect]
     Indication: DYSPHAGIA
     Dosage: 1 CAPSUL DAILY PO
     Route: 048
     Dates: start: 20071201, end: 20080301

REACTIONS (7)
  - ANXIETY [None]
  - ARTHRALGIA [None]
  - CONFUSIONAL STATE [None]
  - DEPRESSION [None]
  - DISTURBANCE IN ATTENTION [None]
  - FATIGUE [None]
  - MUSCLE TWITCHING [None]
